FAERS Safety Report 10572026 (Version 1)
Quarter: 2014Q4

REPORT INFORMATION
  Report Type: Spontaneous
  Country: JP (occurrence: JP)
  Receive Date: 20141107
  Receipt Date: 20141107
  Transmission Date: 20150529
  Serious: Yes (Other)
  Sender: FDA-Public Use
  Company Number: JP-KOWA-2014S1001431

PATIENT
  Age: 77 Year
  Sex: Female

DRUGS (4)
  1. AMLODIPINE [Concomitant]
     Active Substance: AMLODIPINE BESYLATE
     Indication: HYPERTENSION
     Route: 048
  2. PITAVASTATIN [Suspect]
     Active Substance: PITAVASTATIN
     Indication: LIPIDS ABNORMAL
     Route: 048
  3. DEBERZA [Suspect]
     Active Substance: TOFOGLIFLOZIN
     Indication: DIABETES MELLITUS
     Route: 048
     Dates: end: 20141019
  4. TENELIA [Concomitant]
     Active Substance: CITALOPRAM HYDROBROMIDE
     Indication: DIABETES MELLITUS
     Route: 048

REACTIONS (2)
  - Acute myocardial infarction [Unknown]
  - Pleural effusion [None]

NARRATIVE: CASE EVENT DATE: 20141019
